FAERS Safety Report 8824961 (Version 2)
Quarter: 2012Q4

REPORT INFORMATION
  Report Type: Report from Study
  Country: DE (occurrence: DE)
  Receive Date: 20121004
  Receipt Date: 20121019
  Transmission Date: 20130627
  Serious: Yes (Death, Hospitalization, Other)
  Sender: FDA-Public Use
  Company Number: DE-PFIZER INC-2012228199

PATIENT
  Age: 51 Year
  Sex: Male

DRUGS (5)
  1. SUNITINIB MALATE [Suspect]
     Indication: METASTATIC RENAL CELL CARCINOMA
     Dosage: 50 mg, cyclic
     Dates: start: 20120327, end: 20120423
  2. METFORMIN [Concomitant]
     Indication: DIABETES MELLITUS
     Dosage: UNK
     Dates: start: 2010, end: 20120423
  3. L-THYROXIN [Concomitant]
     Indication: HYPOTHYROIDISM
     Dosage: UNK
     Dates: start: 2009, end: 20120423
  4. VOLTAREN RESINAT [Concomitant]
     Indication: COCCYDYNIA
     Dosage: UNK
     Dates: start: 20120306
  5. BISOPROLOL [Concomitant]
     Indication: HYPERTENSION
     Dosage: UNK
     Dates: start: 20120306

REACTIONS (2)
  - Renal failure [Fatal]
  - Multi-organ failure [Fatal]
